FAERS Safety Report 7817992-0 (Version None)
Quarter: 2011Q4

REPORT INFORMATION
  Report Type: 
  Country: None (occurrence: None)
  Receive Date: 20111017
  Receipt Date: 20111011
  Transmission Date: 20120403
  Serious: Yes (Other)
  Sender: FDA-Public Use
  Company Number: US-JNJFOC-20110809243

PATIENT
  Age: 20 Year
  Sex: Female

DRUGS (2)
  1. BENADRYL [Suspect]
     Indication: HYPERSENSITIVITY
     Route: 065
     Dates: start: 20101001, end: 20101001
  2. BENADRYL [Suspect]
     Indication: URTICARIA
     Route: 065
     Dates: start: 20101001, end: 20101001

REACTIONS (4)
  - OFF LABEL USE [None]
  - HYPOTENSION [None]
  - LOSS OF CONSCIOUSNESS [None]
  - OVERDOSE [None]
